FAERS Safety Report 25602155 (Version 2)
Quarter: 2025Q3

REPORT INFORMATION
  Report Type: Report from Study
  Country: CN (occurrence: CN)
  Receive Date: 20250724
  Receipt Date: 20250728
  Transmission Date: 20251021
  Serious: Yes (Hospitalization)
  Sender: EISAI
  Company Number: CN-Eisai-EC-2025-193618

PATIENT
  Age: 50 Year
  Sex: Female
  Weight: 58 kg

DRUGS (15)
  1. ERIBULIN [Suspect]
     Active Substance: ERIBULIN
     Indication: Breast cancer
     Dates: start: 20250711, end: 20250711
  2. ERIBULIN [Suspect]
     Active Substance: ERIBULIN
     Dates: start: 20250722, end: 20250722
  3. CAPECITABINE [Suspect]
     Active Substance: CAPECITABINE
     Indication: Breast cancer
     Dates: start: 20250711, end: 20250718
  4. CAPECITABINE [Suspect]
     Active Substance: CAPECITABINE
     Dates: start: 20250721
  5. CALCIUM CARBONATE\CHOLECALCIFEROL [Concomitant]
     Active Substance: CALCIUM CARBONATE\CHOLECALCIFEROL
     Indication: Prophylaxis
     Dates: start: 20250322
  6. SHENGXUENIN [Concomitant]
     Indication: Anaemia
     Dates: start: 20250703
  7. GLUTATHIONE [Concomitant]
     Active Substance: GLUTATHIONE
     Indication: Hepatobiliary disorder prophylaxis
     Dates: start: 20250710
  8. MAGNESIUM ISOGLYCYRRHIZINATE [Concomitant]
     Active Substance: MAGNESIUM ISOGLYCYRRHIZINATE
     Indication: Hepatobiliary disorder prophylaxis
     Dates: start: 20250710
  9. BICYCLOL [Concomitant]
     Active Substance: BICYCLOL
     Indication: Hepatobiliary disorder prophylaxis
     Dates: start: 20250710
  10. HUMAN ERYTHROPOIETIN [Concomitant]
     Indication: Anaemia
     Dates: start: 20250713, end: 20250713
  11. HUMAN ERYTHROPOIETIN [Concomitant]
     Dates: start: 20250715, end: 20250715
  12. MONTMORILLONITE [Concomitant]
     Active Substance: MONTMORILLONITE
     Indication: Diarrhoea
     Dates: start: 20250716, end: 20250717
  13. POTASSIUM CHLORIDE [Concomitant]
     Active Substance: POTASSIUM CHLORIDE
     Indication: Hypokalaemia
     Dates: start: 20250716, end: 20250720
  14. DICLOFENAC SODIUM [Concomitant]
     Active Substance: DICLOFENAC SODIUM
     Indication: Pyrexia
     Dates: start: 20250716, end: 20250716
  15. LANQIN [Concomitant]
     Indication: Oropharyngeal pain
     Dates: start: 20250716, end: 20250721

REACTIONS (1)
  - Febrile neutropenia [Recovered/Resolved]

NARRATIVE: CASE EVENT DATE: 20250717
